FAERS Safety Report 22143662 (Version 1)
Quarter: 2023Q1

REPORT INFORMATION
  Report Type: Report from Study
  Country: US (occurrence: US)
  Receive Date: 20230327
  Receipt Date: 20230327
  Transmission Date: 20230417
  Serious: Yes (Other)
  Sender: FDA-Public Use
  Company Number: US-HLS-202300083

PATIENT
  Age: 62 Year
  Sex: Male

DRUGS (1)
  1. CLOZARIL [Suspect]
     Active Substance: CLOZAPINE
     Indication: Product used for unknown indication
     Dosage: 1OOMG- 5 TABLETS DAILY
     Route: 065

REACTIONS (3)
  - Dementia Alzheimer^s type [Unknown]
  - Product dose omission issue [Unknown]
  - Somnolence [Unknown]
